FAERS Safety Report 18721716 (Version 2)
Quarter: 2021Q1

REPORT INFORMATION
  Report Type: Spontaneous
  Country: US (occurrence: US)
  Receive Date: 20210110
  Receipt Date: 20210205
  Transmission Date: 20210419
  Serious: Yes (Life-Threatening, Hospitalization)
  Sender: FDA-Public Use
  Company Number: US-TEVA-2020-US-1865182

PATIENT
  Age: 42 Year
  Sex: Male

DRUGS (7)
  1. ENOXAPARIN SODIUM. [Suspect]
     Active Substance: ENOXAPARIN SODIUM
     Indication: PROPHYLAXIS
     Dosage: 1 MG/KG DAILY;
     Route: 058
  2. GUAIFENESIN. [Suspect]
     Active Substance: GUAIFENESIN
     Indication: ASTHMA
     Dosage: AS NEEDED
     Route: 065
  3. HYDROXYCHLOROQUINE [Concomitant]
     Active Substance: HYDROXYCHLOROQUINE
     Indication: COVID-19
     Route: 065
  4. ENOXAPARIN SODIUM. [Suspect]
     Active Substance: ENOXAPARIN SODIUM
     Dosage: 2 MG/KG DAILY;
     Route: 058
  5. SALBUTAMOL [Suspect]
     Active Substance: ALBUTEROL
     Indication: ASTHMA
     Route: 065
  6. VECURONIUM BROMIDE. [Suspect]
     Active Substance: VECURONIUM BROMIDE
     Indication: PARALYSIS
     Dosage: CONTINUOUS INFUSION FOR 4 DAYS
     Route: 065
  7. TOCILIZUMAB. [Concomitant]
     Active Substance: TOCILIZUMAB
     Indication: COVID-19
     Route: 065

REACTIONS (3)
  - Drug ineffective [Unknown]
  - Cardiac arrest [Recovered/Resolved]
  - Embolism venous [Recovered/Resolved]
